FAERS Safety Report 7267424-9 (Version None)
Quarter: 2011Q1

REPORT INFORMATION
  Report Type: 
  Country: None (occurrence: None)
  Receive Date: 20110201
  Receipt Date: 20110127
  Transmission Date: 20110831
  Serious: Yes (Death)
  Sender: FDA-Public Use
  Company Number: FR-SANOFI-AVENTIS-2011SA005418

PATIENT
  Age: 68 Year
  Sex: Female

DRUGS (6)
  1. OXALIPLATIN [Suspect]
     Route: 042
     Dates: start: 20101115, end: 20101115
  2. AVASTIN [Suspect]
     Route: 042
     Dates: start: 20101115, end: 20101115
  3. AVASTIN [Suspect]
     Route: 042
  4. FLUOROURACIL [Suspect]
     Route: 042
     Dates: start: 20101115, end: 20101115
  5. OXALIPLATIN [Suspect]
     Route: 042
     Dates: start: 20101227, end: 20101227
  6. FLUOROURACIL [Suspect]
     Route: 042

REACTIONS (5)
  - DIARRHOEA [None]
  - GENERAL PHYSICAL HEALTH DETERIORATION [None]
  - HYPOTENSION [None]
  - VOMITING [None]
  - NAUSEA [None]
